FAERS Safety Report 8780314 (Version 1)
Quarter: 2012Q4

REPORT INFORMATION
  Report Type: Spontaneous
  Country: US (occurrence: None)
  Receive Date: 20120904
  Receipt Date: 20120904
  Transmission Date: 20130627
  Serious: Yes (Other)
  Sender: FDA-Public Use
  Company Number: None

PATIENT
  Age: 41 Year
  Sex: Female

DRUGS (5)
  1. CARBAMAZEPINE 200 MG APOTEX [Suspect]
     Indication: EPILEPSY
     Dosage: 200 mg every noon, oral tablet
     Route: 048
     Dates: start: 20120805, end: 20120822
  2. DEPAKETE ER [Concomitant]
  3. NOVASC [Concomitant]
  4. KLONAPIN [Concomitant]
  5. LEXAPRO [Concomitant]

REACTIONS (2)
  - Nausea [None]
  - Product substitution issue [None]
